FAERS Safety Report 8541518-X (Version None)
Quarter: 2012Q3

REPORT INFORMATION
  Report Type: 
  Country: None (occurrence: None)
  Receive Date: 20120726
  Receipt Date: 20120719
  Transmission Date: 20120928
  Serious: Yes (Other)
  Sender: FDA-Public Use
  Company Number: TN-ROXANE LABORATORIES, INC.-2012-RO-01570RO

PATIENT
  Age: 39 Year
  Sex: Male

DRUGS (3)
  1. CYCLOPHOSPHAMIDE [Suspect]
     Indication: NEPHROTIC SYNDROME
  2. CHLORAMBUCIL [Suspect]
     Indication: NEPHROTIC SYNDROME
  3. CORTICOSTEROID [Concomitant]
     Indication: NEPHROTIC SYNDROME

REACTIONS (2)
  - RASH ERYTHEMATOUS [None]
  - TYPE IV HYPERSENSITIVITY REACTION [None]
